FAERS Safety Report 5367487-1 (Version None)
Quarter: 2007Q2

REPORT INFORMATION
  Report Type: 
  Country: None (occurrence: None)
  Receive Date: 20070622
  Receipt Date: 20060908
  Transmission Date: 20071010
  Serious: No
  Sender: FDA-Public Use
  Company Number: US-ASTRAZENECA-2006UW17696

PATIENT
  Age: 5 Year
  Sex: Female
  Weight: 17.7 kg

DRUGS (2)
  1. PULMICORT RESPULES [Suspect]
     Indication: ASTHMA
     Route: 055
     Dates: start: 20011001
  2. ALBUTEROL [Concomitant]

REACTIONS (1)
  - URINARY INCONTINENCE [None]
